FAERS Safety Report 5447374-0 (Version None)
Quarter: 2007Q3

REPORT INFORMATION
  Report Type: 
  Country: None (occurrence: None)
  Receive Date: 20070910
  Receipt Date: 20070829
  Transmission Date: 20080115
  Serious: Yes (Disabling)
  Sender: FDA-Public Use
  Company Number: US-AMGEN-US203582

PATIENT
  Sex: Female

DRUGS (17)
  1. PANITUMUMAB [Suspect]
     Indication: COLORECTAL CANCER
     Route: 042
     Dates: start: 20060508, end: 20061211
  2. OXALIPLATIN [Suspect]
     Route: 042
  3. LEUCOVORIN CALCIUM [Concomitant]
     Route: 042
  4. FLUOROURACIL INJ [Concomitant]
     Route: 042
  5. AVASTIN [Concomitant]
     Route: 042
  6. KYTRIL [Concomitant]
     Route: 065
  7. MAGNESIUM SULFATE [Concomitant]
     Route: 065
  8. NEULASTA [Concomitant]
     Route: 065
  9. ARANESP [Concomitant]
     Route: 065
  10. CALCIUM [Concomitant]
     Route: 065
  11. DECADRON [Concomitant]
     Route: 065
  12. ALOXI [Concomitant]
     Route: 065
  13. HYZAAR [Concomitant]
     Route: 048
  14. TOPROL-XL [Concomitant]
     Route: 048
  15. RESTORIL [Concomitant]
     Route: 048
     Dates: end: 20060719
  16. VICODIN [Concomitant]
     Route: 048
  17. MAGNESIUM OXIDE [Concomitant]
     Route: 048

REACTIONS (3)
  - CONTUSION [None]
  - NEUROPATHY PERIPHERAL [None]
  - RASH [None]
